FAERS Safety Report 8078410-3 (Version None)
Quarter: 2012Q1

REPORT INFORMATION
  Report Type: 
  Country: None (occurrence: None)
  Receive Date: 20120123
  Receipt Date: 20120109
  Transmission Date: 20120608
  Serious: Yes (Death)
  Sender: FDA-Public Use
  Company Number: 2012MA000670

PATIENT
  Age: 40 Year
  Sex: Male
  Weight: 83.9154 kg

DRUGS (5)
  1. HEROIN [Concomitant]
  2. NORTRIPTYLINE HCL [Concomitant]
  3. CODEINE SULFATE [Concomitant]
  4. AMITRIPTYLINE HCL [Concomitant]
  5. PAREGORIC LIQUID USP (ALPHARMA) [Suspect]

REACTIONS (1)
  - UNRESPONSIVE TO STIMULI [None]
